FAERS Safety Report 17744786 (Version 2)
Quarter: 2020Q2

REPORT INFORMATION
  Report Type: Spontaneous
  Country: US (occurrence: US)
  Receive Date: 20200505
  Receipt Date: 20200508
  Transmission Date: 20200714
  Serious: No
  Sender: FDA-Public Use
  Company Number: US-PFIZER INC-2020176292

PATIENT
  Age: 74 Year
  Sex: Female

DRUGS (1)
  1. ADVIL PM [Suspect]
     Active Substance: DIPHENHYDRAMINE CITRATE\IBUPROFEN
     Indication: INSOMNIA
     Dosage: 400 MG, AS NEEDED (200MG 2 TABLETS BY MOUTH AS NEEDED AT BEDTIME)
     Route: 048

REACTIONS (2)
  - Drug ineffective [Unknown]
  - Psychomotor hyperactivity [Unknown]
